FAERS Safety Report 5710800-3 (Version None)
Quarter: 2008Q2

REPORT INFORMATION
  Report Type: 
  Country: None (occurrence: None)
  Receive Date: 20080417
  Receipt Date: 20080417
  Transmission Date: 20081010
  Serious: No
  Sender: FDA-Public Use
  Company Number: None

PATIENT
  Age: 56 Year
  Sex: Female
  Weight: 162.3877 kg

DRUGS (1)
  1. MONTELUKAST SODIUM [Suspect]
     Indication: MULTIPLE ALLERGIES
     Dosage: 1 TAB EVENING PO
     Route: 048
     Dates: start: 20080209, end: 20080416

REACTIONS (6)
  - AGGRESSION [None]
  - FORMICATION [None]
  - PAIN [None]
  - PARAESTHESIA [None]
  - PRURITUS GENERALISED [None]
  - SOCIAL AVOIDANT BEHAVIOUR [None]
